FAERS Safety Report 21284008 (Version 2)
Quarter: 2022Q3

REPORT INFORMATION
  Report Type: Spontaneous
  Country: US (occurrence: US)
  Receive Date: 20220901
  Receipt Date: 20220909
  Transmission Date: 20221027
  Serious: Yes (Hospitalization, Other)
  Sender: FDA-Public Use
  Company Number: None

PATIENT
  Age: 71 Year
  Sex: Female

DRUGS (9)
  1. FUROSEMIDE [Suspect]
     Active Substance: FUROSEMIDE
     Indication: Primary amyloidosis
     Dosage: UNK
     Route: 065
     Dates: start: 2020, end: 20210125
  2. ACYCLOVIR [Suspect]
     Active Substance: ACYCLOVIR
     Indication: Primary amyloidosis
     Dosage: UNK
     Route: 065
  3. COTRIMOXAZOLE [Suspect]
     Active Substance: SULFAMETHOXAZOLE\TRIMETHOPRIM
     Indication: Primary amyloidosis
     Dosage: UNK
     Route: 065
     Dates: start: 2020, end: 20210125
  4. CYCLOPHOSPHAMIDE [Concomitant]
     Active Substance: CYCLOPHOSPHAMIDE
     Indication: Primary amyloidosis
     Dosage: UNK (PART OF CYBORD REGIMEN)
     Route: 065
     Dates: start: 20201228
  5. CYCLOPHOSPHAMIDE [Concomitant]
     Active Substance: CYCLOPHOSPHAMIDE
     Dosage: UNK UNK, CYCLICAL 3 CYCLE
     Route: 065
     Dates: start: 20201028
  6. BORTEZOMIB [Concomitant]
     Active Substance: BORTEZOMIB
     Indication: Primary amyloidosis
     Dosage: UNK (PART OF CYBORD REGIMEN)
     Route: 065
     Dates: start: 20201228
  7. BORTEZOMIB [Concomitant]
     Active Substance: BORTEZOMIB
     Dosage: UNK, CYCLICAL 3 CYCLE
     Route: 065
     Dates: start: 20201028
  8. DEXAMETHASONE [Concomitant]
     Active Substance: DEXAMETHASONE
     Indication: Primary amyloidosis
     Dosage: UNK (PART OF CYBORD REGIMEN)
     Route: 065
     Dates: start: 20201228
  9. DEXAMETHASONE [Concomitant]
     Active Substance: DEXAMETHASONE
     Dosage: UNK UNK, CYCLICAL 3 CYCLE.
     Route: 065
     Dates: start: 20201028

REACTIONS (6)
  - Drug reaction with eosinophilia and systemic symptoms [Recovered/Resolved]
  - Hepatic enzyme increased [Recovered/Resolved]
  - Acute kidney injury [Recovered/Resolved]
  - Condition aggravated [Recovered/Resolved]
  - Tubulointerstitial nephritis [Recovered/Resolved]
  - Off label use [Unknown]

NARRATIVE: CASE EVENT DATE: 20210125
